FAERS Safety Report 8090766-4 (Version None)
Quarter: 2012Q1

REPORT INFORMATION
  Report Type: 
  Country: None (occurrence: None)
  Receive Date: 20120124
  Receipt Date: 20120110
  Transmission Date: 20120608
  Serious: Yes (Hospitalization, Disabling, Other)
  Sender: FDA-Public Use
  Company Number: 2010MA000214

PATIENT
  Sex: Female
  Weight: 57.1532 kg

DRUGS (41)
  1. JANUVIA [Concomitant]
  2. AMOXICILLIN [Concomitant]
  3. PROMETHAZINE [Concomitant]
  4. FLUCONAZOLE [Concomitant]
  5. CHLORDIAZEPOXIDE/CLINDINIUM [Concomitant]
  6. BUTALBITOL [Concomitant]
  7. ATENOLOL [Concomitant]
  8. NORVASC [Concomitant]
  9. AMBIEN [Concomitant]
  10. SIMVASTATIN [Concomitant]
  11. LISINOPRIL [Concomitant]
  12. OMEPRAZOLE [Concomitant]
  13. FUROSEMIDE [Concomitant]
  14. DEXAMETHASONE [Concomitant]
  15. ERYTHROMYCIN [Concomitant]
  16. ZESTRIL [Concomitant]
  17. PROPULSID [Concomitant]
  18. METOCLOPRAMIDE [Suspect]
     Indication: NAUSEA
     Dosage: 10 MG;QID;PO
     Route: 048
     Dates: start: 19970101, end: 20080101
  19. METOCLOPRAMIDE [Suspect]
     Indication: GASTROOESOPHAGEAL REFLUX DISEASE
     Dosage: 10 MG;QID;PO
     Route: 048
     Dates: start: 19970101, end: 20080101
  20. NITROFURANTOIN [Concomitant]
  21. DOXYCYCLINE [Concomitant]
  22. HISTAMINE [Concomitant]
  23. MELLARIL [Concomitant]
  24. LYRICA [Concomitant]
  25. POTASSIUM CHLORIDE [Concomitant]
  26. PRAVACHOL [Concomitant]
  27. ZOCOR [Concomitant]
  28. ESTRACE [Concomitant]
  29. BELLANDOONA ELIXIR [Concomitant]
  30. PRILOSEC [Concomitant]
  31. PLAVIX [Concomitant]
  32. SULFAMETH [Concomitant]
  33. GABAPENTIN [Concomitant]
  34. NEURONTIN [Concomitant]
  35. PROPOXYPHENE HCL AND ACETAMINOPHEN [Concomitant]
  36. ANTISPASMODIC ELIXIR [Concomitant]
  37. CIPROFLOXACIN [Concomitant]
  38. PROMETHEGAN [Concomitant]
  39. TEBAMIDE [Concomitant]
  40. FLURAZEPAM [Concomitant]
  41. DARVOCET [Concomitant]

REACTIONS (30)
  - INJURY [None]
  - ACCIDENTAL EXPOSURE [None]
  - TARDIVE DYSKINESIA [None]
  - NAUSEA [None]
  - NECK PAIN [None]
  - DEFORMITY [None]
  - DIARRHOEA [None]
  - NEUROPATHY PERIPHERAL [None]
  - HYPERTENSION [None]
  - DYSKINESIA [None]
  - HUNTINGTON'S DISEASE [None]
  - MIGRAINE [None]
  - EXTRAPYRAMIDAL DISORDER [None]
  - JAW DISORDER [None]
  - ACTIVITIES OF DAILY LIVING IMPAIRED [None]
  - ANHEDONIA [None]
  - ABDOMINAL PAIN [None]
  - HIATUS HERNIA [None]
  - ANXIETY [None]
  - INCORRECT DRUG ADMINISTRATION DURATION [None]
  - PAIN [None]
  - INTENTIONAL DRUG MISUSE [None]
  - NERVOUS SYSTEM DISORDER [None]
  - OESOPHAGITIS [None]
  - MOVEMENT DISORDER [None]
  - MENTAL DISORDER [None]
  - HEADACHE [None]
  - SENSATION OF HEAVINESS [None]
  - ECONOMIC PROBLEM [None]
  - DRUG INTOLERANCE [None]
